FAERS Safety Report 8374458-X (Version None)
Quarter: 2012Q2

REPORT INFORMATION
  Report Type: 
  Country: None (occurrence: None)
  Receive Date: 20120521
  Receipt Date: 20120511
  Transmission Date: 20120825
  Serious: No
  Sender: FDA-Public Use
  Company Number: US-ASTRAZENECA-2010SE06552

PATIENT
  Sex: Female
  Weight: 86.2 kg

DRUGS (6)
  1. SEROQUEL [Suspect]
     Route: 048
  2. AMBIEN [Concomitant]
     Indication: INSOMNIA
     Route: 048
  3. SEROQUEL [Suspect]
     Indication: BIPOLAR DISORDER
     Route: 048
     Dates: start: 20080101
  4. SEROQUEL [Suspect]
     Route: 048
  5. SEROQUEL [Suspect]
     Route: 048
     Dates: start: 20120301
  6. SEROQUEL [Suspect]
     Route: 048

REACTIONS (5)
  - INTENTIONAL DRUG MISUSE [None]
  - INSOMNIA [None]
  - DRUG DISPENSING ERROR [None]
  - WITHDRAWAL SYNDROME [None]
  - ANXIETY [None]
